FAERS Safety Report 6457147-8 (Version None)
Quarter: 2009Q4

REPORT INFORMATION
  Report Type: 
  Country: None (occurrence: None)
  Receive Date: 20091125
  Receipt Date: 20091120
  Transmission Date: 20100525
  Serious: Yes (Hospitalization)
  Sender: FDA-Public Use
  Company Number: B0607675A

PATIENT
  Sex: Female

DRUGS (4)
  1. SEREUPIN [Suspect]
     Indication: DEPRESSION
     Dosage: 10MG PER DAY
     Route: 048
     Dates: start: 20091111, end: 20091117
  2. MODURETIC 5-50 [Suspect]
     Indication: HYPERTENSION
     Dosage: 27.5MG PER DAY
     Route: 048
     Dates: start: 20091116
  3. DIAMOX SRC [Suspect]
     Indication: GLAUCOMA
     Dosage: 500MG PER DAY
     Route: 048
     Dates: start: 20091013, end: 20091116
  4. ENALAPRIL MALEATE [Concomitant]
     Indication: HYPERTENSION
     Dosage: 10MG PER DAY
     Route: 048

REACTIONS (4)
  - COORDINATION ABNORMAL [None]
  - INAPPROPRIATE ANTIDIURETIC HORMONE SECRETION [None]
  - MENTAL DISORDER [None]
  - URINARY INCONTINENCE [None]
